FAERS Safety Report 6473723-0 (Version None)
Quarter: 2009Q4

REPORT INFORMATION
  Report Type: 
  Country: None (occurrence: None)
  Receive Date: 20091204
  Receipt Date: 20091125
  Transmission Date: 20100525
  Serious: Yes (Other)
  Sender: FDA-Public Use
  Company Number: FR-JNJFOC-20091107540

PATIENT
  Sex: Female

DRUGS (20)
  1. TAVANIC [Suspect]
     Indication: CHOLECYSTECTOMY
     Route: 048
     Dates: start: 20090706
  2. IXPRIM [Suspect]
     Indication: CHOLECYSTECTOMY
     Route: 048
     Dates: start: 20090706
  3. LOPERAMIDE [Suspect]
     Route: 065
     Dates: start: 20090704
  4. LOPERAMIDE [Suspect]
     Indication: DRUG USE FOR UNKNOWN INDICATION
     Route: 065
     Dates: start: 20090704
  5. TOPLEXIL (GUAIFENESIN, OXOMEMAZINE) [Suspect]
     Indication: INFLUENZA
     Route: 048
     Dates: start: 20090828
  6. DOLIPRANE [Suspect]
     Indication: INFLUENZA
     Route: 048
     Dates: start: 20090828
  7. FLAGYL [Suspect]
     Indication: CHOLECYSTECTOMY
     Route: 048
     Dates: start: 20090706
  8. BI-PROFENID [Suspect]
     Indication: CHOLECYSTECTOMY
     Route: 048
     Dates: start: 20090706
  9. JOSACINE (JOSAMYCIN) [Suspect]
     Indication: INFLUENZA
     Route: 048
     Dates: start: 20090828
  10. IBUPROFENE [Suspect]
     Indication: INFLUENZA
     Route: 048
     Dates: start: 20090828
  11. AGRAM [Suspect]
     Indication: CHOLELITHIASIS
     Route: 048
     Dates: start: 20090704
  12. SPASFON [Suspect]
     Route: 048
     Dates: start: 20090704, end: 20090706
  13. SPASFON [Suspect]
     Indication: CHOLELITHIASIS
     Route: 048
     Dates: start: 20090704, end: 20090706
  14. MACROGOL [Suspect]
     Indication: CHOLELITHIASIS
     Route: 048
     Dates: start: 20090704, end: 20090706
  15. VOGALENE [Suspect]
     Indication: CHOLELITHIASIS
     Route: 048
     Dates: start: 20090704, end: 20090706
  16. ACUPAN [Suspect]
     Indication: CHOLELITHIASIS
     Route: 065
     Dates: start: 20090704
  17. FORLAX [Suspect]
     Indication: CHOLECYSTECTOMY
     Route: 048
     Dates: start: 20090715
  18. DAFALGAN [Concomitant]
     Route: 065
     Dates: start: 20090715
  19. NSAIDS [Concomitant]
     Indication: HAEMORRHOIDS
     Route: 065
     Dates: start: 20090831
  20. ANTIVARICOSE THERAPY [Concomitant]
     Indication: HAEMORRHOIDS
     Route: 065
     Dates: start: 20090831

REACTIONS (1)
  - STEVENS-JOHNSON SYNDROME [None]
